FAERS Safety Report 5427477-7 (Version None)
Quarter: 2007Q3

REPORT INFORMATION
  Report Type: 
  Country: None (occurrence: None)
  Receive Date: 20070824
  Receipt Date: 20070824
  Transmission Date: 20080115
  Serious: Yes (Disabling)
  Sender: FDA-Public Use
  Company Number: None

PATIENT
  Sex: Female
  Weight: 57.1532 kg

DRUGS (1)
  1. AMLODIPINE [Suspect]
     Indication: HYPERTENSION
     Dosage: ONE QD PO
     Route: 048
     Dates: start: 20070601, end: 20070801

REACTIONS (3)
  - HYPERTENSION [None]
  - PAIN IN EXTREMITY [None]
  - WEIGHT INCREASED [None]
